FAERS Safety Report 5409038-9 (Version None)
Quarter: 2007Q3

REPORT INFORMATION
  Report Type: 
  Country: None (occurrence: None)
  Receive Date: 20070806
  Receipt Date: 20070726
  Transmission Date: 20080115
  Serious: Yes (Death, Hospitalization)
  Sender: FDA-Public Use
  Company Number: 2007-02289

PATIENT
  Age: 36 Year
  Sex: Female
  Weight: 31 kg

DRUGS (6)
  1. VELCADE [Suspect]
     Indication: SQUAMOUS CELL CARCINOMA
     Dosage: 1.30 MG/M2, IV BOLUS
     Route: 040
     Dates: start: 20070529, end: 20070626
  2. IRINOTECAN HCL [Suspect]
     Indication: SQUAMOUS CELL CARCINOMA
     Dosage: 90.00 MG/M2, INTRAVENOUS
     Route: 042
     Dates: start: 20070529, end: 20070626
  3. PERCOCET [Concomitant]
  4. OXYCODONE HCL [Concomitant]
  5. ACETAMINOPHEN [Concomitant]
  6. GABAPENTIN [Concomitant]

REACTIONS (20)
  - ANAEMIA [None]
  - ARTERIAL INJURY [None]
  - ARTHROPOD INFESTATION [None]
  - BACTERIA STOOL IDENTIFIED [None]
  - CEREBRAL ISCHAEMIA [None]
  - CEREBROVASCULAR ACCIDENT [None]
  - DISEASE PROGRESSION [None]
  - EMBOLISM [None]
  - FACIAL PARESIS [None]
  - GASTROINTESTINAL HAEMORRHAGE [None]
  - HEMIPARESIS [None]
  - HEMIPLEGIA [None]
  - HYPOKALAEMIA [None]
  - HYPONATRAEMIA [None]
  - MELAENA [None]
  - OPHTHALMOPLEGIA [None]
  - POST PROCEDURAL COMPLICATION [None]
  - PSEUDOMONAS INFECTION [None]
  - PUPILLARY REFLEX IMPAIRED [None]
  - SKIN ULCER [None]
